FAERS Safety Report 24756714 (Version 1)
Quarter: 2024Q4

REPORT INFORMATION
  Report Type: Spontaneous
  Country: BR (occurrence: BR)
  Receive Date: 20241220
  Receipt Date: 20241220
  Transmission Date: 20250115
  Serious: Yes (Death, Other)
  Sender: TAKEDA
  Company Number: BR-TAKEDA-2024TUS126353

PATIENT
  Age: 81 Year
  Sex: Male

DRUGS (1)
  1. COLCHICINE [Suspect]
     Active Substance: COLCHICINE
     Indication: Gout
     Dosage: UNK

REACTIONS (8)
  - Acute respiratory distress syndrome [Fatal]
  - Atrial fibrillation [Fatal]
  - Respiratory acidosis [Fatal]
  - Metabolic acidosis [Fatal]
  - Hypotension [Fatal]
  - Pyrexia [Unknown]
  - Leukocytosis [Unknown]
  - Overdose [Unknown]
